FAERS Safety Report 19510408 (Version 1)
Quarter: 2021Q3

REPORT INFORMATION
  Report Type: Spontaneous
  Country: US (occurrence: US)
  Receive Date: 20210708
  Receipt Date: 20210708
  Transmission Date: 20211014
  Serious: No
  Sender: FDA-Public Use
  Company Number: None

PATIENT
  Age: 56 Year
  Sex: Male

DRUGS (1)
  1. IMATINIB MES TAB 400MG [Suspect]
     Active Substance: IMATINIB MESYLATE
     Indication: MYELOPROLIFERATIVE NEOPLASM
     Route: 048
     Dates: start: 20210604

REACTIONS (3)
  - Fatigue [None]
  - Amnesia [None]
  - Disturbance in attention [None]

NARRATIVE: CASE EVENT DATE: 20210604
